FAERS Safety Report 6443917-9 (Version None)
Quarter: 2009Q4

REPORT INFORMATION
  Report Type: 
  Country: None (occurrence: None)
  Receive Date: 20091113
  Receipt Date: 20091030
  Transmission Date: 20100525
  Serious: Yes (Other)
  Sender: FDA-Public Use
  Company Number: 1000009563

PATIENT
  Age: 81 Year
  Sex: Female
  Weight: 45 kg

DRUGS (4)
  1. ESCITALOPRAM [Suspect]
     Indication: MAJOR DEPRESSION
     Dosage: 5 MG (5 MG,1 IN 1 D),ORAL
     Route: 048
     Dates: start: 20090301, end: 20090415
  2. HEMIGOXINE [Concomitant]
  3. KARDEGIC [Concomitant]
  4. PREVISCAN [Concomitant]

REACTIONS (1)
  - PARKINSONISM [None]
